FAERS Safety Report 25634215 (Version 1)
Quarter: 2025Q3

REPORT INFORMATION
  Report Type: Report from Study
  Country: US (occurrence: US)
  Receive Date: 20250801
  Receipt Date: 20250801
  Transmission Date: 20251020
  Serious: Yes (Other)
  Sender: ABBVIE
  Company Number: US-ABBVIE-6347172

PATIENT
  Age: 65 Year
  Sex: Female

DRUGS (2)
  1. HUMIRA [Suspect]
     Active Substance: ADALIMUMAB
     Indication: Rheumatoid arthritis
     Route: 058
     Dates: start: 20220126
  2. HUMIRA [Suspect]
     Active Substance: ADALIMUMAB
     Route: 058
     Dates: start: 20250619

REACTIONS (22)
  - Hysterectomy [Unknown]
  - Hypoaesthesia oral [Unknown]
  - Fatigue [Recovering/Resolving]
  - Urinary tract infection [Not Recovered/Not Resolved]
  - Chronic kidney disease [Recovering/Resolving]
  - Renal impairment [Recovering/Resolving]
  - Oral discomfort [Recovering/Resolving]
  - Tongue discomfort [Unknown]
  - Oral herpes [Not Recovered/Not Resolved]
  - Oral candidiasis [Recovering/Resolving]
  - Asthenia [Unknown]
  - Nerve compression [Unknown]
  - Brain fog [Unknown]
  - Osteoarthritis [Unknown]
  - Peripheral swelling [Unknown]
  - Shoulder arthroplasty [Unknown]
  - Knee arthroplasty [Unknown]
  - Spondylitis [Unknown]
  - Drooling [Unknown]
  - Dry mouth [Unknown]
  - Dehydration [Unknown]
  - Culture throat positive [Unknown]

NARRATIVE: CASE EVENT DATE: 20250101
